FAERS Safety Report 7280944-6 (Version None)
Quarter: 2011Q1

REPORT INFORMATION
  Report Type: 
  Country: None (occurrence: None)
  Receive Date: 20110208
  Receipt Date: 20110125
  Transmission Date: 20110831
  Serious: Yes (Life-Threatening)
  Sender: FDA-Public Use
  Company Number: JP-AMGEN LTD.-JPNCT2010000405

PATIENT
  Age: 64 Year
  Sex: Male
  Weight: 75 kg

DRUGS (16)
  1. FLUOROURACIL [Concomitant]
     Route: 041
     Dates: start: 20100628, end: 20101209
  2. BIO THREE [Concomitant]
     Dosage: UNK
     Route: 048
  3. MYSER [Concomitant]
     Dosage: UNK
     Route: 062
  4. PANITUMUMAB [Suspect]
     Indication: COLORECTAL CANCER
     Dosage: 6 MG/KG, Q2WK
     Route: 041
     Dates: start: 20100628
  5. IRINOTECAN HYDROCHLORIDE [Concomitant]
     Route: 041
     Dates: start: 20100628, end: 20101209
  6. LOPEMIN [Concomitant]
     Dosage: UNK
     Route: 048
  7. GRAN [Concomitant]
     Dosage: UNK
     Route: 042
  8. IRINOTECAN HYDROCHLORIDE [Concomitant]
     Indication: COLORECTAL CANCER
     Dosage: 150 MG/M2, Q2WK
     Route: 041
     Dates: start: 20100628
  9. FLUOROURACIL [Concomitant]
     Route: 041
     Dates: start: 20100628
  10. LOCOID CREAM [Concomitant]
     Dosage: UNK
     Route: 062
  11. CALCIUM LEVOFOLINATE [Concomitant]
     Route: 041
     Dates: start: 20100628, end: 20101209
  12. CALCIUM LEVOFOLINATE [Concomitant]
     Indication: COLORECTAL CANCER
     Route: 041
     Dates: start: 20100628
  13. MIYA-BM [Concomitant]
     Dosage: UNK
     Route: 048
  14. KENALOG [Concomitant]
     Dosage: UNK
     Route: 048
  15. FLUOROURACIL [Concomitant]
     Indication: COLORECTAL CANCER
     Dosage: 400 MG/M2, Q2WK
     Route: 040
     Dates: start: 20100628
  16. FLUOROURACIL [Concomitant]
     Route: 040
     Dates: start: 20100628, end: 20101209

REACTIONS (3)
  - STOMATITIS [None]
  - FEBRILE NEUTROPENIA [None]
  - DERMATITIS ACNEIFORM [None]
